FAERS Safety Report 17611841 (Version 1)
Quarter: 2020Q1

REPORT INFORMATION
  Report Type: Spontaneous
  Country: US (occurrence: US)
  Receive Date: 20200330
  Receipt Date: 20200330
  Transmission Date: 20200409
  Serious: No
  Sender: FDA-Public Use
  Company Number: None

PATIENT
  Age: 62 Year
  Sex: Male

DRUGS (1)
  1. APIXABAN (APIXABAN 5MG TAB) [Suspect]
     Active Substance: APIXABAN
     Indication: ATRIAL FIBRILLATION
     Dates: start: 20180123, end: 20191211

REACTIONS (4)
  - Haemorrhage [None]
  - Intra-abdominal haematoma [None]
  - Therapy cessation [None]
  - Haemoglobin decreased [None]

NARRATIVE: CASE EVENT DATE: 20191203
